FAERS Safety Report 6205104-9 (Version None)
Quarter: 2009Q2

REPORT INFORMATION
  Report Type: 
  Country: None (occurrence: None)
  Receive Date: 20090527
  Receipt Date: 20090224
  Transmission Date: 20091009
  Serious: No
  Sender: FDA-Public Use
  Company Number: US-ABBOTT-09P-163-0559282-00

PATIENT
  Sex: Male

DRUGS (8)
  1. SIMCOR [Suspect]
     Indication: BLOOD TRIGLYCERIDES INCREASED
     Dosage: 500/20 MG FOR 8 DAYS
     Dates: start: 20090210
  2. SIMCOR [Suspect]
     Dosage: 1000 MG/40 MG EVERY NIGHT
  3. ASPIRIN [Concomitant]
     Indication: DRUG USE FOR UNKNOWN INDICATION
     Route: 048
  4. NORVASC [Concomitant]
     Indication: DRUG USE FOR UNKNOWN INDICATION
     Dosage: 160 MG/12.5 MG 2 IN MORNING
     Route: 048
  5. ATENOLOL [Concomitant]
     Indication: DRUG USE FOR UNKNOWN INDICATION
     Route: 048
  6. DIAVON [Concomitant]
     Indication: DRUG USE FOR UNKNOWN INDICATION
     Route: 048
  7. METFORMIN HCL [Concomitant]
     Indication: DRUG USE FOR UNKNOWN INDICATION
     Dosage: MORNING AND EVENING
     Route: 048
  8. BENAZETRIL [Concomitant]
     Indication: DRUG USE FOR UNKNOWN INDICATION
     Dosage: IN MORNING AND EVENING
     Route: 048

REACTIONS (1)
  - FEELING HOT [None]
